FAERS Safety Report 4994355-7 (Version None)
Quarter: 2006Q2

REPORT INFORMATION
  Report Type: 
  Country: None (occurrence: None)
  Receive Date: 20060503
  Receipt Date: 20060420
  Transmission Date: 20061013
  Serious: Yes (Death)
  Sender: FDA-Public Use
  Company Number: 2006JP000720

PATIENT
  Age: 77 Year
  Sex: Female
  Weight: 38 kg

DRUGS (14)
  1. PROGRAF [Suspect]
     Indication: RHEUMATOID ARTHRITIS
     Dosage: 1 MG, UID/QD, ORAL
     Route: 048
     Dates: start: 20051101, end: 20060313
  2. BUFFERIN/JPN (ACETYLSALICYLIC ACID, ALUMINIUM GLYCINATE) TABLET [Suspect]
     Indication: CEREBRAL INFARCTION
     Dosage: 81 MG, UIUD/QD, ORAL
     Route: 048
     Dates: start: 20060228
  3. HEPARIN CALCIUM [Suspect]
     Indication: PULMONARY INFARCTION
     Dosage: 8 KIU, BID, SUBCUTANEOUS
     Route: 058
     Dates: start: 20060303, end: 20060314
  4. PREDNISOLONE [Concomitant]
  5. OSTELUC (ETODOLAC) TABLET [Concomitant]
  6. CYTOTEC [Concomitant]
  7. MUCOSTA (REBAMIPIDE) TABLET [Suspect]
  8. PYDOXAL (PYRIDOXAL PHOSPHATE) CAPSULE [Concomitant]
  9. HOKUNALIN (TULOBUTEROL HYDROCHLORIDE) TAPE [Concomitant]
  10. ONE-ALPHA (ALFACALCIDOL) TABLET [Concomitant]
  11. BLOPRESS (CANDESARTAN CILEXETIL) TABLET [Concomitant]
  12. TAKEPRON (LANSOPRAZOLE) TABLET [Concomitant]
  13. LENDORMIN (BROTIZOLAM) TABLET [Concomitant]
  14. SEREVENT [Concomitant]

REACTIONS (3)
  - HAEMOPTYSIS [None]
  - PULMONARY INFARCTION [None]
  - RESPIRATORY ARREST [None]
